FAERS Safety Report 6280522-1 (Version None)
Quarter: 2009Q3

REPORT INFORMATION
  Report Type: 
  Country: None (occurrence: None)
  Receive Date: 20090724
  Receipt Date: 20080819
  Transmission Date: 20100115
  Serious: Yes (Other)
  Sender: FDA-Public Use
  Company Number: A0745022A

PATIENT
  Age: 49 Year
  Sex: Female
  Weight: 99.5 kg

DRUGS (13)
  1. AVANDIA [Suspect]
     Dosage: 2MG PER DAY
     Route: 048
     Dates: start: 20000401, end: 20061001
  2. AVANDAMET [Suspect]
     Route: 048
     Dates: start: 20050901
  3. ACTOS [Concomitant]
     Dates: start: 20031013
  4. GLUCOPHAGE [Concomitant]
     Dates: start: 20031201
  5. METFORMIN HCL [Concomitant]
     Dates: start: 20031013, end: 20061201
  6. GLYSET [Concomitant]
     Dates: start: 20000401, end: 20000401
  7. HUMALOG [Concomitant]
     Dates: start: 20031013, end: 20060301
  8. GLUCOTROL [Concomitant]
     Dates: start: 20040430, end: 20050201
  9. HUMULIN R [Concomitant]
     Dates: start: 20001231
  10. LISINOPRIL [Concomitant]
  11. DIOVAN [Concomitant]
  12. CADUET [Concomitant]
  13. AMITRIPTYLINE HCL [Concomitant]

REACTIONS (1)
  - CEREBROVASCULAR ACCIDENT [None]
